FAERS Safety Report 5487697-2 (Version None)
Quarter: 2007Q4

REPORT INFORMATION
  Report Type: 
  Country: None (occurrence: None)
  Receive Date: 20071015
  Receipt Date: 20071015
  Transmission Date: 20080405
  Serious: Yes (Other)
  Sender: FDA-Public Use
  Company Number: None

PATIENT
  Age: 57 Year
  Sex: Male
  Weight: 96.6162 kg

DRUGS (1)
  1. HYDROCODONE BITARTRATE + IBUPROFEN [Suspect]
     Indication: PAIN
     Dosage: 1   4   PO
     Route: 048
     Dates: start: 20070815, end: 20070915

REACTIONS (2)
  - DRUG INEFFECTIVE [None]
  - PHARMACEUTICAL PRODUCT COMPLAINT [None]
